FAERS Safety Report 15403014 (Version 1)
Quarter: 2018Q3

REPORT INFORMATION
  Report Type: Spontaneous
  Country: US (occurrence: US)
  Receive Date: 20180918
  Receipt Date: 20180918
  Transmission Date: 20181010
  Serious: Yes (Other)
  Sender: FDA-Public Use
  Company Number: None

PATIENT
  Age: 47 Year
  Sex: Female
  Weight: 63 kg

DRUGS (9)
  1. LINZESS [Concomitant]
     Active Substance: LINACLOTIDE
  2. AIMOVIG [Suspect]
     Active Substance: ERENUMAB-AOOE
     Indication: MIGRAINE
     Dosage: ?          QUANTITY:2 DF DOSAGE FORM;?
     Route: 058
     Dates: start: 20180916
  3. NALTREXONE [Concomitant]
     Active Substance: NALTREXONE
  4. PROAIR HFA [Concomitant]
     Active Substance: ALBUTEROL SULFATE
  5. LAMICTAL [Concomitant]
     Active Substance: LAMOTRIGINE
  6. TOPAMAX [Concomitant]
     Active Substance: TOPIRAMATE
  7. ADVAIR HFA [Concomitant]
     Active Substance: FLUTICASONE PROPIONATE\SALMETEROL XINAFOATE
  8. ALBUTEROL. [Concomitant]
     Active Substance: ALBUTEROL
  9. PROTONIX [Concomitant]
     Active Substance: PANTOPRAZOLE SODIUM

REACTIONS (2)
  - Akathisia [None]
  - Palpitations [None]

NARRATIVE: CASE EVENT DATE: 20180917
